FAERS Safety Report 9346347 (Version 1)
Quarter: 2013Q2

REPORT INFORMATION
  Report Type: Spontaneous
  Country: NO (occurrence: NO)
  Receive Date: 20130613
  Receipt Date: 20130613
  Transmission Date: 20140414
  Serious: Yes (Other)
  Sender: FDA-Public Use
  Company Number: NO-ELI_LILLY_AND_COMPANY-NO201204006064

PATIENT
  Sex: Male

DRUGS (3)
  1. ZYPREXA [Suspect]
     Indication: BIPOLAR DISORDER
     Dosage: UNK
     Dates: start: 2000, end: 2002
  2. SEROQUEL [Concomitant]
     Dosage: UNK
     Dates: start: 2002
  3. PREDNISOLON [Concomitant]

REACTIONS (4)
  - Idiopathic thrombocytopenic purpura [Unknown]
  - Periodontitis [Unknown]
  - Bipolar disorder [Unknown]
  - Dry mouth [Unknown]
